FAERS Safety Report 25337631 (Version 1)
Quarter: 2025Q2

REPORT INFORMATION
  Report Type: Spontaneous
  Country: US (occurrence: US)
  Receive Date: 20250520
  Receipt Date: 20250520
  Transmission Date: 20250716
  Serious: Yes (Other)
  Sender: SEPTODONT
  Company Number: US-SEPTODONT-2024019072

PATIENT
  Sex: Male

DRUGS (1)
  1. CARBOCAINE [Suspect]
     Active Substance: MEPIVACAINE HYDROCHLORIDE
     Indication: Dental local anaesthesia
     Route: 004
     Dates: start: 20241001, end: 20241001

REACTIONS (5)
  - Bell^s palsy [Unknown]
  - Facial paralysis [Unknown]
  - Headache [Unknown]
  - Sensory disturbance [Unknown]
  - Paraesthesia oral [Unknown]

NARRATIVE: CASE EVENT DATE: 20241001
